FAERS Safety Report 5911340-9 (Version None)
Quarter: 2008Q4

REPORT INFORMATION
  Report Type: 
  Country: None (occurrence: None)
  Receive Date: 20081007
  Receipt Date: 20080924
  Transmission Date: 20090506
  Serious: Yes (Death, Hospitalization, Other)
  Sender: FDA-Public Use
  Company Number: CA-ELI_LILLY_AND_COMPANY-CA200809003147

PATIENT
  Sex: Female

DRUGS (10)
  1. ZYPREXA [Suspect]
     Dosage: 5 MG, EACH EVENING
     Route: 048
  2. ZYPREXA [Suspect]
     Dosage: 7.5 MG, UNK
  3. ASCORBIC ACID [Concomitant]
     Dosage: 500 MG, 2/D
     Route: 048
  4. ZINC GLUCONATE [Concomitant]
     Dosage: 25 MG, 2/D
     Route: 048
  5. SYNTHROID [Concomitant]
     Dosage: 0.025 MG, 4/W
     Route: 048
  6. SYNTHROID [Concomitant]
     Dosage: 0.05 MG, UNK
  7. ESTER-C [Concomitant]
  8. PREVACID [Concomitant]
     Dosage: 30 MG, UNK
  9. METFORMIN HCL [Concomitant]
     Dosage: 500 MG, UNK
  10. LEVAQUIN [Concomitant]

REACTIONS (7)
  - COMA [None]
  - CONVULSION [None]
  - DEATH [None]
  - DELIRIUM [None]
  - DEPRESSED LEVEL OF CONSCIOUSNESS [None]
  - PAIN [None]
  - URINARY TRACT INFECTION [None]
